FAERS Safety Report 18209050 (Version 2)
Quarter: 2020Q4

REPORT INFORMATION
  Report Type: Spontaneous
  Country: US (occurrence: US)
  Receive Date: 20200828
  Receipt Date: 20201103
  Transmission Date: 20210113
  Serious: Yes (Other)
  Sender: FDA-Public Use
  Company Number: US-PFIZER INC-2020331988

PATIENT
  Age: 68 Year
  Sex: Female
  Weight: 58.97 kg

DRUGS (2)
  1. CYTOMEL [Suspect]
     Active Substance: LIOTHYRONINE SODIUM
     Indication: TRI-IODOTHYRONINE DECREASED
     Dosage: 7.5 UG, DAILY (5 UG ONE AND ONE HALF DAILY)
     Route: 048
  2. LEVOTHYROXINE. [Concomitant]
     Active Substance: LEVOTHYROXINE
     Indication: HORMONE REPLACEMENT THERAPY
     Dosage: UNK (104 MCG /DAY. ON TWO DAYS SHE TAKES 100 MCG, THEN TUESDAY 112 MCG AND THEN ROTATES THE CYCLE)

REACTIONS (3)
  - Hyperthyroidism [Unknown]
  - Sepsis [Unknown]
  - Inflammation [Unknown]
